FAERS Safety Report 25816034 (Version 1)
Quarter: 2025Q3

REPORT INFORMATION
  Report Type: Spontaneous
  Country: EU (occurrence: EU)
  Receive Date: 20250918
  Receipt Date: 20250918
  Transmission Date: 20251020
  Serious: Yes (Hospitalization, Other)
  Sender: AUROBINDO
  Company Number: EU-AFSSAPS-AN2025001116

PATIENT
  Age: 30 Year
  Sex: Male
  Weight: 83 kg

DRUGS (8)
  1. CLOZAPINE [Suspect]
     Active Substance: CLOZAPINE
     Indication: Product used for unknown indication
     Route: 048
     Dates: start: 20250808, end: 20250808
  2. PRAZEPAM [Suspect]
     Active Substance: PRAZEPAM
     Indication: Product used for unknown indication
     Route: 048
     Dates: start: 20250808, end: 20250808
  3. LOXAPINE [Suspect]
     Active Substance: LOXAPINE
     Indication: Product used for unknown indication
     Route: 048
     Dates: start: 20250808, end: 20250808
  4. PIPAMPERONE [Suspect]
     Active Substance: PIPAMPERONE
     Indication: Behaviour disorder
     Route: 048
  5. VALPROATE SODIUM [Suspect]
     Active Substance: VALPROATE SODIUM
     Indication: Behaviour disorder
     Dosage: 3 DOSAGE FORM
     Route: 048
  6. TRANXENE [Suspect]
     Active Substance: CLORAZEPATE DIPOTASSIUM
     Indication: Behaviour disorder
     Dosage: 4 DOSAGE FORM,
     Route: 048
  7. PERICIAZINE [Suspect]
     Active Substance: PERICIAZINE
     Indication: Behaviour disorder
     Dosage: 10 MILLIGRAM, ONCE A DAY (1 AT NOON)
     Route: 048
  8. TRIHEXYPHENIDYL HYDROCHLORIDE [Suspect]
     Active Substance: TRIHEXYPHENIDYL HYDROCHLORIDE
     Indication: Behaviour disorder
     Dosage: 1 DOSAGE FORM, ONE AT NOON
     Route: 048

REACTIONS (3)
  - Coma [Recovered/Resolved]
  - Wrong patient [Recovered/Resolved]
  - Drug interaction [Recovered/Resolved]

NARRATIVE: CASE EVENT DATE: 20250808
